FAERS Safety Report 8369743-1 (Version None)
Quarter: 2012Q2

REPORT INFORMATION
  Report Type: 
  Country: None (occurrence: None)
  Receive Date: 20120518
  Receipt Date: 20120507
  Transmission Date: 20120825
  Serious: Yes (Disabling)
  Sender: FDA-Public Use
  Company Number: IL-TEVA-337020ISR

PATIENT
  Age: 46 Year
  Sex: Female

DRUGS (7)
  1. DOXORUBICIN HCL [Suspect]
     Indication: HODGKIN'S DISEASE
     Dosage: 25 MG/M2 FOR 6 CYCLES
     Route: 065
  2. BLEOMYCIN SULFATE [Suspect]
     Indication: HODGKIN'S DISEASE
     Dosage: 10 MG/M2 FOR 6 CYCLES
     Route: 065
  3. PROCARBAZINE HYDROCHLORIDE [Suspect]
     Indication: HODGKIN'S DISEASE
     Dosage: 700 MG/M2 FOR 6 CYCLES
     Route: 065
  4. VINCRISTINE [Suspect]
     Indication: HODGKIN'S DISEASE
     Dosage: 1.4 MG/M2 FOR 6 CYCLES
     Route: 065
  5. ETOPOSIDE [Suspect]
     Indication: HODGKIN'S DISEASE
     Dosage: 300 MG/M2 FOR 6 CYCLES
     Route: 065
  6. PREDNISONE [Suspect]
     Indication: HODGKIN'S DISEASE
     Dosage: 280 MG/M2 FOR 6 CYCLES
     Route: 065
  7. CYCLOPHOSPHAMIDE [Suspect]
     Indication: HODGKIN'S DISEASE
     Dosage: 650 MG/M2 FOR 6 CYCLES
     Route: 065

REACTIONS (1)
  - RESPIRATORY DISORDER [None]
